FAERS Safety Report 9233358 (Version 1)
Quarter: 2013Q2

REPORT INFORMATION
  Report Type: Spontaneous
  Country: US (occurrence: US)
  Receive Date: 20130416
  Receipt Date: 20130416
  Transmission Date: 20140414
  Serious: No
  Sender: FDA-Public Use
  Company Number: US-009507513-1304USA007104

PATIENT
  Sex: Female

DRUGS (3)
  1. SAPHRIS [Suspect]
     Indication: BIPOLAR DISORDER
     Dosage: 5 MG, HS
     Route: 060
     Dates: start: 20121122, end: 20130405
  2. SAPHRIS [Suspect]
     Dosage: 2.5 MG, QD
     Route: 060
     Dates: start: 20130405
  3. LAMICTAL [Concomitant]

REACTIONS (2)
  - Deja vu [Unknown]
  - Sedation [Unknown]
